FAERS Safety Report 22155141 (Version 2)
Quarter: 2023Q2

REPORT INFORMATION
  Report Type: Report from Study
  Country: US (occurrence: US)
  Receive Date: 20230330
  Receipt Date: 20230404
  Transmission Date: 20230721
  Serious: No
  Sender: FDA-Public Use
  Company Number: US-002147023-NVSC2023US071593

PATIENT
  Sex: Male
  Weight: 101.15 kg

DRUGS (6)
  1. CLOBETASOL [Suspect]
     Active Substance: CLOBETASOL
     Indication: Psoriasis
     Dosage: UNK
     Route: 065
  2. KETOCONAZOLE [Suspect]
     Active Substance: KETOCONAZOLE
     Indication: Psoriasis
     Dosage: UNK
     Route: 065
  3. KETOCONAZOLE [Suspect]
     Active Substance: KETOCONAZOLE
     Indication: Psoriatic arthropathy
  4. ALBUTEROL SULFATE [Suspect]
     Active Substance: ALBUTEROL SULFATE
     Indication: Psoriasis
     Dosage: UNK
     Route: 065
  5. IBUPROFEN [Suspect]
     Active Substance: IBUPROFEN
     Indication: Psoriasis
     Dosage: UNK
     Route: 065
  6. ERGOCALCIFEROL [Suspect]
     Active Substance: ERGOCALCIFEROL
     Indication: Psoriasis
     Dosage: UNK
     Route: 065

REACTIONS (6)
  - Tinea versicolour [Recovering/Resolving]
  - Skin hyperpigmentation [Recovering/Resolving]
  - Psoriasis [Unknown]
  - Pruritus [Unknown]
  - Drug ineffective [Unknown]
  - Off label use [Unknown]
